FAERS Safety Report 6381881-1 (Version None)
Quarter: 2009Q3

REPORT INFORMATION
  Report Type: 
  Country: None (occurrence: None)
  Receive Date: 20090930
  Receipt Date: 20090924
  Transmission Date: 20100115
  Serious: Yes (Other)
  Sender: FDA-Public Use
  Company Number: US-JNJFOC-20090908151

PATIENT
  Sex: Female
  Weight: 95 kg

DRUGS (10)
  1. TOPAMAX [Suspect]
     Indication: HYPERTENSION
     Route: 048
  2. REBIF [Suspect]
     Indication: MULTIPLE SCLEROSIS
     Route: 058
  3. LISINOPRIL [Suspect]
     Indication: HYPERTENSION
     Route: 065
  4. VYTORIN [Concomitant]
     Indication: HYPERTENSION
     Route: 065
  5. LANTUS [Concomitant]
     Indication: DIABETES MELLITUS
     Route: 065
  6. INSULIN [Concomitant]
     Indication: DIABETES MELLITUS
     Route: 065
  7. AVANDARYL [Concomitant]
     Indication: DIABETES MELLITUS
     Route: 065
  8. TRICOR [Concomitant]
     Indication: BLOOD CHOLESTEROL INCREASED
     Route: 065
  9. MIRAPEX [Concomitant]
     Indication: RESTLESS LEGS SYNDROME
     Route: 065
  10. GABAPENTIN [Concomitant]
     Indication: PAIN
     Route: 065

REACTIONS (4)
  - ABASIA [None]
  - PAIN [None]
  - RENAL IMPAIRMENT [None]
  - TREMOR [None]
